FAERS Safety Report 11309995 (Version 5)
Quarter: 2015Q4

REPORT INFORMATION
  Report Type: Spontaneous
  Country: IT (occurrence: IT)
  Receive Date: 20150724
  Receipt Date: 20151002
  Transmission Date: 20160304
  Serious: Yes (Death, Hospitalization, Other)
  Sender: FDA-Public Use
  Company Number: IT-PFIZER INC-2015242112

PATIENT
  Age: 65 Year
  Sex: Male

DRUGS (7)
  1. ENDOXAN-BAXTER [Suspect]
     Active Substance: CYCLOPHOSPHAMIDE
     Indication: B-CELL LYMPHOMA
     Dosage: 1313 MG, CYCLIC
     Route: 042
     Dates: start: 20150626, end: 20150626
  2. MABTHERA [Suspect]
     Active Substance: RITUXIMAB
     Dosage: UNK
  3. MABTHERA [Suspect]
     Active Substance: RITUXIMAB
     Dosage: UNK
  4. INSULIN [Concomitant]
     Active Substance: INSULIN NOS
     Indication: DIABETES MELLITUS
  5. VINCRISTINE SULFATE. [Suspect]
     Active Substance: VINCRISTINE SULFATE
     Indication: B-CELL LYMPHOMA
     Dosage: 2 MG, CYCLIC
     Route: 042
     Dates: start: 20150626, end: 20150626
  6. ADRIBLASTINA [Suspect]
     Active Substance: DOXORUBICIN HYDROCHLORIDE
     Indication: B-CELL LYMPHOMA
     Dosage: 87 MG, CYCLIC
     Route: 042
     Dates: start: 20150626, end: 20150626
  7. MABTHERA [Suspect]
     Active Substance: RITUXIMAB
     Indication: B-CELL LYMPHOMA
     Dosage: 90 MG, CYCLIC
     Route: 042
     Dates: start: 20150626, end: 20150626

REACTIONS (11)
  - Septic shock [Fatal]
  - Blood calcium decreased [Unknown]
  - White blood cell count decreased [Unknown]
  - Loss of consciousness [Unknown]
  - Hyperpyrexia [Unknown]
  - Haemoglobin decreased [Unknown]
  - Febrile neutropenia [Fatal]
  - Pneumonia [Fatal]
  - Respiratory failure [Fatal]
  - Anuria [Fatal]
  - Chills [Unknown]

NARRATIVE: CASE EVENT DATE: 20150705
